FAERS Safety Report 9116132 (Version 1)
Quarter: 2013Q1

REPORT INFORMATION
  Report Type: Spontaneous
  Country: US (occurrence: US)
  Receive Date: 20130225
  Receipt Date: 20130225
  Transmission Date: 20140127
  Serious: No
  Sender: FDA-Public Use
  Company Number: US-B.I. PHARMACEUTICALS,INC./RIDGEFIELD-2013-BI-04740BP

PATIENT
  Sex: Male
  Weight: 81 kg

DRUGS (11)
  1. SPIRIVA [Suspect]
     Indication: CHRONIC OBSTRUCTIVE PULMONARY DISEASE
     Dosage: 18 MCG
     Route: 055
     Dates: start: 201106
  2. SIMVASTATIN [Concomitant]
     Indication: BLOOD CHOLESTEROL INCREASED
     Route: 048
  3. DICLOFENAC [Concomitant]
     Indication: ARTHRITIS
     Dosage: 150 MG
     Route: 048
  4. RANITIDINE [Concomitant]
     Indication: GASTROOESOPHAGEAL REFLUX DISEASE
     Dosage: 300 MG
     Route: 048
  5. OMEPRAZOLE [Concomitant]
     Dosage: 80 MG
     Route: 048
  6. CALCITONIN [Concomitant]
     Indication: OSTEOPOROSIS
     Route: 045
  7. TRAMADOL [Concomitant]
     Route: 048
  8. OXYBUTININ [Concomitant]
     Dosage: 10 MG
     Route: 048
  9. FISH OIL [Concomitant]
     Route: 048
  10. VITAMIN D [Concomitant]
     Route: 048
  11. CALCIUM [Concomitant]
     Route: 042

REACTIONS (5)
  - Cataract [Recovered/Resolved]
  - Macular degeneration [Not Recovered/Not Resolved]
  - Dry eye [Not Recovered/Not Resolved]
  - Dry mouth [Not Recovered/Not Resolved]
  - Myopia [Not Recovered/Not Resolved]
